FAERS Safety Report 8288205-3 (Version None)
Quarter: 2012Q2

REPORT INFORMATION
  Report Type: 
  Country: None (occurrence: None)
  Receive Date: 20120416
  Receipt Date: 20120403
  Transmission Date: 20120825
  Serious: Yes (Hospitalization, Other)
  Sender: FDA-Public Use
  Company Number: CA-ROCHE-1056587

PATIENT
  Age: 67 Year
  Sex: Female

DRUGS (8)
  1. FUROSEMIDE [Concomitant]
     Route: 048
  2. PERINDOPRIL ERBUMINE [Concomitant]
     Route: 048
  3. ALTEPLASE [Suspect]
     Indication: PRODUCT USED FOR UNKNOWN INDICATION
     Route: 042
  4. CRESTOR [Concomitant]
     Route: 048
  5. ASPIRIN [Concomitant]
     Route: 048
  6. POTASSIUM CHLORIDE [Concomitant]
     Route: 048
  7. ALTEPLASE [Suspect]
     Route: 042
  8. METOPROLOL [Concomitant]
     Route: 048

REACTIONS (8)
  - APHASIA [None]
  - READING DISORDER [None]
  - DYSARTHRIA [None]
  - HEMIPARESIS [None]
  - HYPOTENSION [None]
  - AGITATION [None]
  - CEREBELLAR HAEMORRHAGE [None]
  - TRANSIENT ISCHAEMIC ATTACK [None]
